FAERS Safety Report 24302007 (Version 1)
Quarter: 2024Q3

REPORT INFORMATION
  Report Type: Spontaneous
  Country: US (occurrence: US)
  Receive Date: 20240910
  Receipt Date: 20240910
  Transmission Date: 20241017
  Serious: Yes (Hospitalization)
  Sender: CHEPLAPHARM
  Company Number: US-ROCHE-10000072915

PATIENT
  Age: 70 Year
  Sex: Male
  Weight: 103.59 kg

DRUGS (2)
  1. CAPECITABINE [Suspect]
     Active Substance: CAPECITABINE
     Indication: Colon cancer metastatic
  2. NEXAVAR [Suspect]
     Active Substance: SORAFENIB
     Indication: Colon cancer metastatic

REACTIONS (6)
  - Dehydration [Unknown]
  - Asthenia [Unknown]
  - Vomiting [Unknown]
  - White blood cell count increased [Unknown]
  - Tremor [Unknown]
  - Hypotension [Unknown]

NARRATIVE: CASE EVENT DATE: 20130326
